FAERS Safety Report 7783158-6 (Version None)
Quarter: 2011Q3

REPORT INFORMATION
  Report Type: 
  Country: None (occurrence: None)
  Receive Date: 20110928
  Receipt Date: 20110922
  Transmission Date: 20111222
  Serious: Yes (Other)
  Sender: FDA-Public Use
  Company Number: DE-BRISTOL-MYERS SQUIBB COMPANY-15984925

PATIENT
  Age: 48 Year
  Sex: Male

DRUGS (2)
  1. AMBISOME [Suspect]
     Dates: start: 20110808
  2. AMPHOTERICIN B [Suspect]
     Indication: CRYPTOCOCCOSIS
     Dates: start: 20110813

REACTIONS (6)
  - HAEMOLYSIS [None]
  - ANAEMIA [None]
  - VOMITING [None]
  - MEDICATION ERROR [None]
  - OVERDOSE [None]
  - RENAL FAILURE ACUTE [None]
